FAERS Safety Report 5005893-5 (Version None)
Quarter: 2006Q2

REPORT INFORMATION
  Report Type: 
  Country: None (occurrence: None)
  Receive Date: 20060517
  Receipt Date: 20060517
  Transmission Date: 20061013
  Serious: Yes (Hospitalization)
  Sender: FDA-Public Use
  Company Number: None

PATIENT
  Age: 72 Year
  Sex: Male

DRUGS (9)
  1. IBUPROFEN [Suspect]
     Indication: PAIN
     Dosage: DOSE N/A
     Route: 065
  2. FUROSEMIDE [Concomitant]
  3. FELODIPINE [Concomitant]
  4. ALLOPURINOL [Concomitant]
  5. METHOCARBAMOL [Concomitant]
  6. ATENOLOL [Concomitant]
  7. OMEPRAZOLE [Concomitant]
  8. DS5 [Concomitant]
  9. ZOCOR [Concomitant]

REACTIONS (1)
  - GASTRITIS [None]
